FAERS Safety Report 4768085-0 (Version None)
Quarter: 2005Q3

REPORT INFORMATION
  Report Type: 
  Country: None (occurrence: None)
  Receive Date: 20050912
  Receipt Date: 20050912
  Transmission Date: 20060218
  Serious: No
  Sender: FDA-Public Use
  Company Number: None

PATIENT
  Age: 50 Year
  Sex: Female

DRUGS (1)
  1. IRON SUCROSE [Suspect]
     Dosage: 300 MG

REACTIONS (3)
  - INFUSION RELATED REACTION [None]
  - RESTLESS LEGS SYNDROME [None]
  - RESTLESSNESS [None]
